FAERS Safety Report 6974579-X (Version None)
Quarter: 2010Q3

REPORT INFORMATION
  Report Type: 
  Country: None (occurrence: None)
  Receive Date: 20100909
  Receipt Date: 20080715
  Transmission Date: 20110219
  Serious: No
  Sender: FDA-Public Use
  Company Number: US-WYE-H05145408

PATIENT
  Sex: Female

DRUGS (4)
  1. PROTONIX [Suspect]
     Dosage: UNKNOWN
  2. SYMLIN [Concomitant]
     Indication: DIABETES MELLITUS
  3. NOVOLOG [Concomitant]
  4. AMLODIPINE BESYLATE AND BENAZEPRIL HCL [Concomitant]

REACTIONS (3)
  - CONDITION AGGRAVATED [None]
  - DRUG EFFECT DECREASED [None]
  - GASTROOESOPHAGEAL REFLUX DISEASE [None]
